FAERS Safety Report 9181221 (Version 2)
Quarter: 2013Q2

REPORT INFORMATION
  Report Type: Spontaneous
  Country: US (occurrence: US)
  Receive Date: 20130322
  Receipt Date: 20130517
  Transmission Date: 20140414
  Serious: Yes (Hospitalization, Other)
  Sender: FDA-Public Use
  Company Number: US-PFIZER INC-2013092966

PATIENT
  Age: 21 Year
  Sex: Male

DRUGS (1)
  1. CHANTIX [Suspect]
     Dosage: UNK, STRRTING PACK AS DIRECTED
     Dates: start: 20080820, end: 20080917

REACTIONS (1)
  - Suicide attempt [Unknown]
